FAERS Safety Report 6786179-5 (Version None)
Quarter: 2010Q2

REPORT INFORMATION
  Report Type: 
  Country: None (occurrence: None)
  Receive Date: 20100622
  Receipt Date: 20100622
  Transmission Date: 20101027
  Serious: Yes (Other)
  Sender: FDA-Public Use
  Company Number: None

PATIENT
  Age: 65 Year
  Sex: Female
  Weight: 50.8029 kg

DRUGS (1)
  1. PRIMIDONE [Suspect]
     Dosage: 50MG 4 X 50MG/DAY PO
     Route: 048
     Dates: start: 20100615, end: 20100615

REACTIONS (6)
  - HYPERTENSION [None]
  - INITIAL INSOMNIA [None]
  - MUSCLE TWITCHING [None]
  - PALPITATIONS [None]
  - PRODUCT SUBSTITUTION ISSUE [None]
  - THROAT TIGHTNESS [None]
